FAERS Safety Report 7068859-X (Version None)
Quarter: 2010Q4

REPORT INFORMATION
  Report Type: 
  Country: None (occurrence: None)
  Receive Date: 20101028
  Receipt Date: 20101013
  Transmission Date: 20110411
  Serious: Yes (Hospitalization)
  Sender: FDA-Public Use
  Company Number: AU-AMGEN-KDL445206

PATIENT

DRUGS (15)
  1. NEUPOGEN [Suspect]
     Indication: CHEMOTHERAPY
     Dosage: 780 A?G, QD
  2. ALLOPURINOL [Concomitant]
  3. TRIMETHOPRIM + SULFAMETHOXAZOLE [Concomitant]
  4. DOCUSATE SODIUM [Concomitant]
  5. CYCLOPHOSPHAMIDE [Concomitant]
  6. DOXORUBICIN HYDROCHLORIDE [Concomitant]
  7. OXYCODONE HYDROCHLORIDE [Concomitant]
  8. FLUCONAZOLE [Concomitant]
  9. NULYTELY [Concomitant]
  10. OXYCODONE HYDROCHLORIDE [Concomitant]
  11. PARACETAMOL [Concomitant]
  12. PREDNISONE [Concomitant]
  13. SENNA FRUIT [Concomitant]
  14. VALACICLOVIR [Concomitant]
  15. VINCRISTINE SULFATE [Concomitant]

REACTIONS (3)
  - BACK PAIN [None]
  - BONE PAIN [None]
  - PLEURAL EFFUSION [None]
